FAERS Safety Report 8128460-3 (Version None)
Quarter: 2012Q1

REPORT INFORMATION
  Report Type: 
  Country: None (occurrence: None)
  Receive Date: 20120210
  Receipt Date: 20120131
  Transmission Date: 20120608
  Serious: Yes (Other)
  Sender: FDA-Public Use
  Company Number: FR-JNJFOC-20120204618

PATIENT
  Sex: Female

DRUGS (12)
  1. NEUPOGEN [Suspect]
     Indication: FOETAL EXPOSURE DURING PREGNANCY
     Route: 065
  2. DOXORUBICIN HCL [Suspect]
     Dosage: CYCLE 2
     Route: 064
  3. IFOSFAMIDE [Suspect]
     Dosage: CYCLE 1
     Route: 064
  4. DOXORUBICIN HCL [Suspect]
     Dosage: CYCLE 3
     Route: 064
  5. DOXORUBICIN HCL [Suspect]
     Indication: FOETAL EXPOSURE DURING PREGNANCY
     Dosage: CYCLE 1
     Route: 064
  6. METOCLOPRAMIDE [Concomitant]
     Indication: FOETAL EXPOSURE DURING PREGNANCY
     Route: 064
  7. IV FLUIDS [Suspect]
     Dosage: CYCLE 3
     Route: 064
  8. IFOSFAMIDE [Suspect]
     Indication: FOETAL EXPOSURE DURING PREGNANCY
     Dosage: CYCLE 1
     Route: 064
  9. IV FLUIDS [Suspect]
     Indication: FOETAL EXPOSURE DURING PREGNANCY
     Dosage: CYCLE 1
     Route: 064
  10. ONDANSETRON [Concomitant]
     Indication: FOETAL EXPOSURE DURING PREGNANCY
     Route: 064
  11. IFOSFAMIDE [Suspect]
     Dosage: CYCLE 1
     Route: 064
  12. IV FLUIDS [Suspect]
     Dosage: CYCLE 2
     Route: 064

REACTIONS (1)
  - PREMATURE BABY [None]
